FAERS Safety Report 8882454 (Version 1)
Quarter: 2012Q4

REPORT INFORMATION
  Report Type: 
  Country: FR (occurrence: FR)
  Receive Date: 20121102
  Receipt Date: 20121102
  Transmission Date: 20130627
  Serious: Yes (Other)
  Sender: FDA-Public Use
  Company Number: FR-UCBSA-049686

PATIENT
  Age: 69 Year
  Sex: Female

DRUGS (5)
  1. KEPPRA [Suspect]
     Indication: PROPHYLAXIS
     Route: 048
     Dates: start: 2011, end: 2012
  2. LAROXYL [Concomitant]
     Indication: FIBROMYALGIA
     Route: 048
  3. DEROXAT [Concomitant]
     Indication: DEPRESSION
     Route: 048
  4. PREVISCAN [Concomitant]
     Route: 048
  5. UNSPECIFIED CODEINE ANALGESIC [Concomitant]
     Indication: ANALGESIC THERAPY
     Route: 048

REACTIONS (4)
  - Suicidal ideation [Recovered/Resolved]
  - Pulmonary embolism [Recovered/Resolved]
  - Major depression [Recovered/Resolved]
  - Vertigo [Recovered/Resolved]
